FAERS Safety Report 5812819-0 (Version None)
Quarter: 2008Q3

REPORT INFORMATION
  Report Type: 
  Country: None (occurrence: None)
  Receive Date: 20080717
  Receipt Date: 20080708
  Transmission Date: 20090109
  Serious: Yes (Life-Threatening)
  Sender: FDA-Public Use
  Company Number: DE-WYE-H05010208

PATIENT
  Sex: Male

DRUGS (2)
  1. CORDAREX [Suspect]
     Indication: TACHYARRHYTHMIA
     Route: 042
     Dates: start: 20080620, end: 20080621
  2. CORDAREX [Suspect]
     Indication: ATRIAL FIBRILLATION

REACTIONS (2)
  - ACUTE HEPATIC FAILURE [None]
  - CIRCULATORY COLLAPSE [None]
